FAERS Safety Report 14832995 (Version 1)
Quarter: 2018Q2

REPORT INFORMATION
  Report Type: Spontaneous
  Country: US (occurrence: US)
  Receive Date: 20180415
  Receipt Date: 20180415
  Transmission Date: 20180711
  Serious: Yes (Hospitalization)
  Sender: FDA-Public Use
  Company Number: None

PATIENT
  Age: 77 Year
  Sex: Male
  Weight: 72 kg

DRUGS (8)
  1. VITAMIN-B COMPLEX [Concomitant]
  2. IRON [Concomitant]
     Active Substance: IRON
  3. BIOTIN [Concomitant]
     Active Substance: BIOTIN
  4. PROBIOTIC [Concomitant]
     Active Substance: PROBIOTICS NOS
  5. TAMSULOSIN [Concomitant]
     Active Substance: TAMSULOSIN
  6. IMBRUVICA [Suspect]
     Active Substance: IBRUTINIB
     Indication: CHRONIC LYMPHOCYTIC LEUKAEMIA
     Dosage: ?          QUANTITY:2 CAPSULE(S);?
     Route: 048
  7. FINASTERIDE. [Concomitant]
     Active Substance: FINASTERIDE
  8. CALCIUM [Concomitant]
     Active Substance: CALCIUM

REACTIONS (2)
  - Atrial fibrillation [None]
  - Mitral valve incompetence [None]

NARRATIVE: CASE EVENT DATE: 20171115
